FAERS Safety Report 15447019 (Version 1)
Quarter: 2018Q3

REPORT INFORMATION
  Report Type: Spontaneous
  Country: US (occurrence: US)
  Receive Date: 20180925
  Receipt Date: 20180925
  Transmission Date: 20181010
  Serious: Yes (Hospitalization)
  Sender: FDA-Public Use
  Company Number: None

PATIENT
  Age: 64 Year
  Sex: Female

DRUGS (7)
  1. PREDNISONE. [Concomitant]
     Active Substance: PREDNISONE
  2. TURMERIC [Concomitant]
     Active Substance: HERBALS\TURMERIC
  3. METOCLOPRAM [Concomitant]
     Active Substance: METOCLOPRAMIDE
  4. IBUPROFEN. [Concomitant]
     Active Substance: IBUPROFEN
  5. SULFASALAZ [Concomitant]
  6. XELJANZ XR [Suspect]
     Active Substance: TOFACITINIB CITRATE
     Indication: RHEUMATOID ARTHRITIS
     Route: 048
     Dates: start: 201808
  7. METHOTREXATE. [Concomitant]
     Active Substance: METHOTREXATE

REACTIONS (1)
  - Drug dose omission [None]
